FAERS Safety Report 10978688 (Version 1)
Quarter: 2015Q2

REPORT INFORMATION
  Report Type: Spontaneous
  Country: US (occurrence: None)
  Receive Date: 20150401
  Receipt Date: 20150401
  Transmission Date: 20150821
  Serious: Yes (Hospitalization)
  Sender: FDA-Public Use
  Company Number: None

PATIENT
  Age: 72 Year
  Sex: Male
  Weight: 75 kg

DRUGS (2)
  1. CARVEDILOL. [Concomitant]
     Active Substance: CARVEDILOL
     Indication: ATRIAL FIBRILLATION
     Route: 048
     Dates: start: 20150204, end: 20150208
  2. LISINOPRIL. [Suspect]
     Active Substance: LISINOPRIL
     Indication: CARDIAC FAILURE CONGESTIVE
     Route: 048
     Dates: start: 20150208, end: 20150208

REACTIONS (4)
  - Hypotension [None]
  - Vision blurred [None]
  - Dyspnoea [None]
  - Dizziness [None]

NARRATIVE: CASE EVENT DATE: 20150208
